FAERS Safety Report 17599557 (Version 1)
Quarter: 2020Q1

REPORT INFORMATION
  Report Type: Spontaneous
  Country: GB (occurrence: GB)
  Receive Date: 20200330
  Receipt Date: 20200330
  Transmission Date: 20200409
  Serious: Yes (Hospitalization, Other)
  Sender: FDA-Public Use
  Company Number: GB-MYLANLABS-2020M1032243

PATIENT
  Age: 87 Year
  Sex: Female

DRUGS (7)
  1. LOSARTAN. [Suspect]
     Active Substance: LOSARTAN
     Indication: HYPERTENSION
     Dosage: 50 MILLIGRAM, QD
  2. IRON [Concomitant]
     Active Substance: IRON
     Dosage: 210 MILLIGRAM, TID
  3. DIGOXIN. [Suspect]
     Active Substance: DIGOXIN
     Indication: PRODUCT USED FOR UNKNOWN INDICATION
     Dosage: 62.5MG OD
  4. COZAAR [Suspect]
     Active Substance: LOSARTAN POTASSIUM
     Dosage: 50 MILLIGRAM, QD
     Route: 048
     Dates: start: 2004
  5. LOSARTAN. [Suspect]
     Active Substance: LOSARTAN
     Dosage: 50MG, BID
  6. COZAAR [Suspect]
     Active Substance: LOSARTAN POTASSIUM
     Indication: HYPERTENSION
     Dosage: 50 MILLIGRAM, BID
     Route: 048
  7. FUROSEMIDE. [Concomitant]
     Active Substance: FUROSEMIDE
     Dosage: 40 MILLIGRAM, OD

REACTIONS (10)
  - Cardiac failure congestive [Unknown]
  - Dyspnoea [Unknown]
  - Somnolence [Unknown]
  - Incorrect dose administered [Unknown]
  - Feeding disorder [Unknown]
  - Insomnia [Unknown]
  - Haemorrhage [Unknown]
  - Anaemia [Unknown]
  - Quality of life decreased [Unknown]
  - Cerebrovascular accident [Unknown]

NARRATIVE: CASE EVENT DATE: 2018
